FAERS Safety Report 15616840 (Version 4)
Quarter: 2018Q4

REPORT INFORMATION
  Report Type: Report from Study
  Country: US (occurrence: US)
  Receive Date: 20181114
  Receipt Date: 20181231
  Transmission Date: 20190205
  Serious: Yes (Other)
  Sender: FDA-Public Use
  Company Number: US-BAYER-2018-208843

PATIENT
  Age: 39 Year
  Sex: Female

DRUGS (4)
  1. STIVARGA [Suspect]
     Active Substance: REGORAFENIB
     Indication: BREAST CANCER
     Dosage: 160 MG, QD
     Route: 048
     Dates: start: 20181116, end: 20181204
  2. STIVARGA [Suspect]
     Active Substance: REGORAFENIB
     Indication: COLORECTAL CANCER
     Dosage: 80 MG, QD
     Route: 048
     Dates: start: 20181101, end: 20181107
  3. STIVARGA [Suspect]
     Active Substance: REGORAFENIB
     Indication: COLON CANCER
     Dosage: 120 MG, QD
     Dates: start: 20181108, end: 20181115
  4. STIVARGA [Suspect]
     Active Substance: REGORAFENIB
     Indication: COLORECTAL CANCER
     Dosage: 120 MG, QD
     Route: 048
     Dates: start: 20181205

REACTIONS (7)
  - Hypertension [None]
  - Neuropathy peripheral [Recovering/Resolving]
  - Fatigue [None]
  - Palmar-plantar erythrodysaesthesia syndrome [None]
  - Peripheral swelling [None]
  - Muscle spasms [Recovering/Resolving]
  - Off label use [None]

NARRATIVE: CASE EVENT DATE: 2018
